FAERS Safety Report 5394434-9 (Version None)
Quarter: 2007Q3

REPORT INFORMATION
  Report Type: 
  Country: None (occurrence: None)
  Receive Date: 20070723
  Receipt Date: 20070413
  Transmission Date: 20080115
  Serious: No
  Sender: FDA-Public Use
  Company Number: US-AMGEN-US217804

PATIENT
  Sex: Female
  Weight: 58.1 kg

DRUGS (5)
  1. VECTIBIX [Suspect]
     Indication: COLORECTAL CANCER
     Route: 042
     Dates: start: 20070226
  2. XELODA [Suspect]
     Route: 065
     Dates: start: 20070219
  3. ZANTAC 150 [Concomitant]
     Route: 065
  4. PERCOCET [Concomitant]
     Route: 065
  5. COLACE [Concomitant]
     Route: 065

REACTIONS (1)
  - HAEMATOMA [None]
